FAERS Safety Report 12689300 (Version 2)
Quarter: 2016Q3

REPORT INFORMATION
  Report Type: Spontaneous
  Country: MT (occurrence: MT)
  Receive Date: 20160826
  Receipt Date: 20160907
  Transmission Date: 20161109
  Serious: Yes (Hospitalization, Other)
  Sender: FDA-Public Use
  Company Number: MT-CELGENEUS-MLT-2016083991

PATIENT
  Age: 63 Year
  Sex: Female

DRUGS (3)
  1. DEFERASIROX [Concomitant]
     Active Substance: DEFERASIROX
     Indication: PRODUCT USED FOR UNKNOWN INDICATION
     Route: 048
  2. EPO [Concomitant]
     Active Substance: ERYTHROPOIETIN
     Indication: PRODUCT USED FOR UNKNOWN INDICATION
     Route: 048
  3. AZACITIDINE INJECTABLE [Suspect]
     Active Substance: AZACITIDINE
     Indication: MYELODYSPLASTIC SYNDROME
     Dosage: 125 MILLIGRAM
     Route: 058
     Dates: start: 20160623, end: 20160629

REACTIONS (3)
  - Dermatitis bullous [Unknown]
  - Bacterial infection [Unknown]
  - Fluid imbalance [Unknown]

NARRATIVE: CASE EVENT DATE: 20160625
